FAERS Safety Report 6492580-X (Version None)
Quarter: 2009Q4

REPORT INFORMATION
  Report Type: 
  Country: None (occurrence: None)
  Receive Date: 20091214
  Receipt Date: 20091130
  Transmission Date: 20100525
  Serious: Yes (Other)
  Sender: FDA-Public Use
  Company Number: PHHY2009AU53807

PATIENT
  Age: 28 Year
  Sex: Female

DRUGS (2)
  1. OXYTOCIN [Suspect]
     Dosage: 10 IU, UNK
     Route: 030
  2. OXYTOCIN [Suspect]
     Dosage: 40 IU
     Route: 042

REACTIONS (5)
  - DRUG EXPOSURE DURING PREGNANCY [None]
  - NORMAL NEWBORN [None]
  - RETAINED PLACENTA OR MEMBRANES [None]
  - UTERINE ATONY [None]
  - VAGINAL HAEMORRHAGE [None]
